FAERS Safety Report 17054883 (Version 1)
Quarter: 2019Q4

REPORT INFORMATION
  Report Type: Spontaneous
  Country: US (occurrence: US)
  Receive Date: 20191120
  Receipt Date: 20191120
  Transmission Date: 20200122
  Serious: No
  Sender: FDA-Public Use
  Company Number: US-SA-2019SA316181

PATIENT
  Age: 64 Year
  Sex: Male

DRUGS (1)
  1. CAMPATH [Suspect]
     Active Substance: ALEMTUZUMAB
     Indication: HEPATOSPLENIC T-CELL LYMPHOMA
     Dosage: 3 MG, UNK
     Route: 041

REACTIONS (2)
  - Bronchospasm [Recovered/Resolved]
  - Chills [Recovered/Resolved]
